FAERS Safety Report 23444243 (Version 2)
Quarter: 2024Q1

REPORT INFORMATION
  Report Type: Spontaneous
  Country: CN (occurrence: CN)
  Receive Date: 20240125
  Receipt Date: 20240222
  Transmission Date: 20240410
  Serious: Yes (Other)
  Sender: FDA-Public Use
  Company Number: CN-PFIZER INC-PV202400009773

PATIENT
  Age: 2 Year
  Sex: Male

DRUGS (5)
  1. AZITHROMYCIN [Suspect]
     Active Substance: AZITHROMYCIN
     Indication: Anti-infective therapy
     Dosage: 0.18 G, ONCE DAILY
     Route: 048
     Dates: start: 20240113, end: 20240114
  2. CEFTAZIDIME [Suspect]
     Active Substance: CEFTAZIDIME
     Indication: Anti-infective therapy
     Dosage: 0.9 G,  TWICE A DAY
     Route: 041
     Dates: start: 20240113, end: 20240114
  3. CEFTAZIDIME [Suspect]
     Active Substance: CEFTAZIDIME
     Dosage: 0.85 G, EVERY 12 HOURS
     Route: 041
     Dates: start: 20240115, end: 20240118
  4. SODIUM CHLORIDE [Concomitant]
     Active Substance: SODIUM CHLORIDE
     Indication: Vehicle solution use
     Dosage: 50 ML, 2X/DAY
     Route: 041
     Dates: start: 20240113, end: 20240114
  5. SODIUM CHLORIDE [Concomitant]
     Active Substance: SODIUM CHLORIDE
     Indication: Vehicle solution use
     Dosage: 100 ML, 2X/DAY
     Route: 041
     Dates: start: 20240115, end: 20240118

REACTIONS (2)
  - Neutropenia [Unknown]
  - White blood cell count decreased [Unknown]

NARRATIVE: CASE EVENT DATE: 20240118
